FAERS Safety Report 18155113 (Version 2)
Quarter: 2020Q3

REPORT INFORMATION
  Report Type: Other
  Country: DE (occurrence: DE)
  Receive Date: 20200817
  Receipt Date: 20200821
  Transmission Date: 20201103
  Serious: Yes (Other)
  Sender: FDA-Public Use
  Company Number: DE-ROCHE-2658584

PATIENT

DRUGS (3)
  1. VENETOCLAX. [Suspect]
     Active Substance: VENETOCLAX
     Indication: CHRONIC LYMPHOCYTIC LEUKAEMIA
     Route: 065
  2. OBINUTUZUMAB. [Suspect]
     Active Substance: OBINUTUZUMAB
     Indication: CHRONIC LYMPHOCYTIC LEUKAEMIA
     Route: 042
  3. IBRUTINIB [Suspect]
     Active Substance: IBRUTINIB
     Indication: CHRONIC LYMPHOCYTIC LEUKAEMIA
     Route: 065

REACTIONS (13)
  - Cerebral aspergillosis [Unknown]
  - Infusion related reaction [Unknown]
  - Tumour lysis syndrome [Unknown]
  - Thrombocytopenia [Unknown]
  - Infection [Unknown]
  - Lymphatic disorder [Unknown]
  - Progressive multifocal leukoencephalopathy [Unknown]
  - Neutropenia [Unknown]
  - Cardiac disorder [Unknown]
  - Urosepsis [Unknown]
  - Atrial fibrillation [Unknown]
  - Staphylococcal sepsis [Unknown]
  - Blood disorder [Unknown]
